FAERS Safety Report 4493285-7 (Version None)
Quarter: 2004Q4

REPORT INFORMATION
  Report Type: 
  Country: None (occurrence: None)
  Receive Date: 20041102
  Receipt Date: 20041014
  Transmission Date: 20050328
  Serious: Yes (Hospitalization)
  Sender: FDA-Public Use
  Company Number: US_0403101925

PATIENT
  Age: 92 Year
  Sex: Female
  Weight: 46 kg

DRUGS (8)
  1. FORTEO [Suspect]
     Indication: OSTEOPOROSIS
     Dosage: 20 UG DAY
     Dates: start: 20030701
  2. CALCIUM [Concomitant]
  3. GLUCOSAMINE [Concomitant]
  4. FUROSEMIDE [Concomitant]
  5. POTASSIUM CHLORIDE [Concomitant]
  6. MINIPRESS [Concomitant]
  7. METOCLOPRAMIDE [Concomitant]
  8. CIMETIDINE [Concomitant]

REACTIONS (14)
  - ABDOMINAL PAIN UPPER [None]
  - ARTHRALGIA [None]
  - ARTHRITIS [None]
  - CONDITION AGGRAVATED [None]
  - DRUG EFFECT DECREASED [None]
  - GASTROOESOPHAGEAL REFLUX DISEASE [None]
  - HIATUS HERNIA [None]
  - ILEUS [None]
  - INTESTINAL FUNCTIONAL DISORDER [None]
  - PAIN IN EXTREMITY [None]
  - PEPTIC ULCER [None]
  - PHARMACEUTICAL PRODUCT COMPLAINT [None]
  - POLYP [None]
  - ULCER [None]
